FAERS Safety Report 10523337 (Version 2)
Quarter: 2014Q4

REPORT INFORMATION
  Report Type: Spontaneous
  Country: GB (occurrence: GB)
  Receive Date: 20141016
  Receipt Date: 20141016
  Transmission Date: 20150528
  Serious: Yes (Other)
  Sender: FDA-Public Use
  Company Number: GB-ELI_LILLY_AND_COMPANY-GB201408007681

PATIENT
  Age: 75 Year
  Sex: Female
  Weight: 75.4 kg

DRUGS (9)
  1. IVABRADINE [Concomitant]
     Active Substance: IVABRADINE
  2. HUMULIN N [Suspect]
     Active Substance: INSULIN HUMAN
     Indication: TYPE 2 DIABETES MELLITUS
     Dosage: 14 U, BID
     Route: 058
     Dates: start: 201312
  3. SPIRONOLACTONE. [Concomitant]
     Active Substance: SPIRONOLACTONE
  4. ASPIRIN. [Concomitant]
     Active Substance: ASPIRIN
  5. GTN [Concomitant]
     Active Substance: NITROGLYCERIN
  6. ELANTAN [Concomitant]
     Active Substance: ISOSORBIDE MONONITRATE
  7. BUMETANIDE. [Concomitant]
     Active Substance: BUMETANIDE
  8. SIMVASTATIN. [Concomitant]
     Active Substance: SIMVASTATIN
  9. BENDROFLUMETHIAZIDE [Concomitant]
     Active Substance: BENDROFLUMETHIAZIDE

REACTIONS (4)
  - Cardiac failure chronic [Unknown]
  - Alopecia [Not Recovered/Not Resolved]
  - Ear infection [Not Recovered/Not Resolved]
  - Weight increased [Not Recovered/Not Resolved]

NARRATIVE: CASE EVENT DATE: 201406
